FAERS Safety Report 9057518 (Version 1)
Quarter: 2013Q1

REPORT INFORMATION
  Report Type: Spontaneous
  Country: DE (occurrence: DE)
  Receive Date: 20130204
  Receipt Date: 20130204
  Transmission Date: 20140127
  Serious: Yes (Other)
  Sender: FDA-Public Use
  Company Number: DE-PFIZER INC-2013041517

PATIENT
  Age: 1 Day
  Sex: Male
  Weight: 3.33 kg

DRUGS (3)
  1. LYRICA [Suspect]
     Indication: DEPRESSION
     Dosage: 225 MG DAILY (150-0-75)
     Route: 064
     Dates: start: 20091107, end: 20100804
  2. TREVILOR RETARD [Suspect]
     Dosage: 150 MG DAILY
     Route: 064
     Dates: start: 20091107, end: 20100804
  3. FOLIC ACID [Concomitant]
     Indication: PROPHYLAXIS OF NEURAL TUBE DEFECT
     Dosage: 0.4 MG DAILY
     Route: 064
     Dates: end: 20100506

REACTIONS (10)
  - Maternal exposure during pregnancy [Recovered/Resolved]
  - Drug withdrawal syndrome neonatal [Recovered/Resolved]
  - Neonatal respiratory distress syndrome [Recovered/Resolved]
  - Hypertonia neonatal [Recovered/Resolved]
  - Agitation neonatal [Recovered/Resolved]
  - Hyperhidrosis [Recovered/Resolved]
  - Diarrhoea neonatal [Recovered/Resolved]
  - Feeding disorder neonatal [Recovered/Resolved]
  - Patent ductus arteriosus [Unknown]
  - Atrial septal defect [Unknown]
